FAERS Safety Report 8013316-7 (Version None)
Quarter: 2011Q4

REPORT INFORMATION
  Report Type: 
  Country: None (occurrence: None)
  Receive Date: 20111229
  Receipt Date: 20111216
  Transmission Date: 20120403
  Serious: Yes (Other)
  Sender: FDA-Public Use
  Company Number: PHHY2011CA101665

PATIENT
  Sex: Female

DRUGS (5)
  1. SANDOSTATIN LAR [Suspect]
     Indication: PERITONEAL NEOPLASM
  2. GAS X [Concomitant]
     Indication: ABDOMINAL DISTENSION
  3. AFINITOR [Suspect]
     Indication: NEUROENDOCRINE TUMOUR
     Dosage: 10 MG, QD
     Route: 048
     Dates: start: 20111103, end: 20111118
  4. AFINITOR [Suspect]
     Indication: PERITONEAL NEOPLASM
  5. SANDOSTATIN LAR [Suspect]
     Indication: NEUROENDOCRINE TUMOUR
     Dosage: 40 MG, EVERY 4 WEEKS
     Route: 030
     Dates: start: 20110531

REACTIONS (13)
  - PRURITUS [None]
  - DRY MOUTH [None]
  - CHEILITIS [None]
  - DIARRHOEA [None]
  - NAUSEA [None]
  - CHAPPED LIPS [None]
  - COLON CANCER [None]
  - HEADACHE [None]
  - SKIN EXFOLIATION [None]
  - TONGUE DISORDER [None]
  - COUGH [None]
  - ACNE [None]
  - HEPATIC NEOPLASM MALIGNANT [None]
